FAERS Safety Report 10183250 (Version 2)
Quarter: 2014Q2

REPORT INFORMATION
  Report Type: Report from Study
  Country: CA (occurrence: CA)
  Receive Date: 20140520
  Receipt Date: 20140520
  Transmission Date: 20141212
  Serious: Yes (Hospitalization)
  Sender: FDA-Public Use
  Company Number: CA-B.I. PHARMACEUTICALS,INC./RIDGEFIELD-2014-RU-00163BP

PATIENT
  Age: 86 Year
  Sex: Male
  Weight: 72 kg

DRUGS (8)
  1. DABIGATRAN [Suspect]
     Indication: CEREBROVASCULAR ACCIDENT PROPHYLAXIS
     Route: 065
     Dates: start: 20131210, end: 20140313
  2. DABIGATRAN [Suspect]
     Indication: ATRIAL FIBRILLATION
  3. LEVOFLOXCIN [Suspect]
     Indication: PNEUMONIA
     Dosage: 1500 MG
     Route: 048
     Dates: start: 20140317, end: 20140321
  4. ATENOLOL [Suspect]
     Indication: HYPERTENSION
     Dosage: 100 MG
     Route: 048
     Dates: end: 20140317
  5. NORVASC [Suspect]
     Indication: HYPERTENSION
     Dosage: 10 MG
     Route: 048
     Dates: end: 20140317
  6. MICARDIS PLUS [Suspect]
     Indication: HYPERTENSION
     Route: 048
     Dates: end: 20140317
  7. DIGOXIN [Suspect]
     Indication: ATRIAL FIBRILLATION
     Dosage: 0.25 MG
     Route: 048
     Dates: end: 20140317
  8. METHYLDOPA [Suspect]
     Indication: HYPERTENSION
     Dosage: 125 MG
     Route: 048
     Dates: end: 20140317

REACTIONS (4)
  - Atrioventricular block complete [Recovered/Resolved]
  - Toxicity to various agents [Recovered/Resolved]
  - Presyncope [Recovered/Resolved]
  - Pneumonia [Recovered/Resolved]
